FAERS Safety Report 7012058-4 (Version None)
Quarter: 2010Q3

REPORT INFORMATION
  Report Type: 
  Country: None (occurrence: None)
  Receive Date: 20100922
  Receipt Date: 20100922
  Transmission Date: 20110219
  Serious: Yes (Hospitalization)
  Sender: FDA-Public Use
  Company Number: None

PATIENT
  Sex: Female
  Weight: 77.8 kg

DRUGS (3)
  1. DOXORUBICIN HYDROCHLORIDE [Suspect]
     Dosage: 234 MG
     Dates: end: 20100830
  2. G-CSF (FILGRASTIM, AMGEN) [Suspect]
     Dosage: 12 MG
     Dates: end: 20100830
  3. TAXOL [Suspect]
     Dosage: 1872 MG
     Dates: end: 20100809

REACTIONS (2)
  - FATIGUE [None]
  - HAEMOGLOBIN DECREASED [None]
